FAERS Safety Report 6296216-2 (Version None)
Quarter: 2009Q3

REPORT INFORMATION
  Report Type: 
  Country: None (occurrence: None)
  Receive Date: 20090804
  Receipt Date: 20090724
  Transmission Date: 20100115
  Serious: Yes (Other)
  Sender: FDA-Public Use
  Company Number: US-NOVOPROD-289760

PATIENT

DRUGS (1)
  1. NOVOSEVEN [Suspect]
     Indication: HAEMATOMA
     Dosage: UNKNOWN

REACTIONS (1)
  - HAEMORRHAGE INTRACRANIAL [None]
